FAERS Safety Report 6092234-8 (Version None)
Quarter: 2009Q1

REPORT INFORMATION
  Report Type: 
  Country: None (occurrence: None)
  Receive Date: 20090225
  Receipt Date: 20090220
  Transmission Date: 20090719
  Serious: Yes (Hospitalization)
  Sender: FDA-Public Use
  Company Number: A0713045A

PATIENT
  Age: 48 Year
  Sex: Male
  Weight: 109.1 kg

DRUGS (5)
  1. AVANDIA [Suspect]
     Route: 048
     Dates: start: 19990101, end: 20070503
  2. LORA TAB [Concomitant]
  3. ULTRAM [Concomitant]
  4. POTASSIUM CHLORIDE [Concomitant]
  5. PROTONIX [Concomitant]

REACTIONS (3)
  - CARDIAC FAILURE CONGESTIVE [None]
  - INJURY [None]
  - MYOCARDIAL INFARCTION [None]
